FAERS Safety Report 23392808 (Version 1)
Quarter: 2024Q1

REPORT INFORMATION
  Report Type: Spontaneous
  Country: PL (occurrence: PL)
  Receive Date: 20240111
  Receipt Date: 20240111
  Transmission Date: 20240410
  Serious: Yes (Other)
  Sender: FDA-Public Use
  Company Number: PL-TEVA-VS-3141732

PATIENT

DRUGS (1)
  1. CARBAMAZEPINE [Suspect]
     Active Substance: CARBAMAZEPINE
     Dosage: CARBAMAZEPINE INTAKE IN 2015
     Route: 065
     Dates: end: 2015

REACTIONS (1)
  - Dermatitis exfoliative generalised [Recovered/Resolved]
